FAERS Safety Report 7710662-9 (Version None)
Quarter: 2011Q3

REPORT INFORMATION
  Report Type: 
  Country: None (occurrence: None)
  Receive Date: 20110825
  Receipt Date: 20110823
  Transmission Date: 20111222
  Serious: Yes (Other)
  Sender: FDA-Public Use
  Company Number: US-PFIZER INC-2011195564

PATIENT
  Sex: Female
  Weight: 72.562 kg

DRUGS (2)
  1. ADVIL LIQUI-GELS [Suspect]
     Dosage: UNK
  2. ADVIL LIQUI-GELS [Suspect]
     Indication: HEADACHE
     Dosage: UNK

REACTIONS (2)
  - OVERDOSE [None]
  - RENAL FAILURE CHRONIC [None]
